FAERS Safety Report 25917893 (Version 2)
Quarter: 2025Q4

REPORT INFORMATION
  Report Type: Report from Study
  Country: US (occurrence: US)
  Receive Date: 20251014
  Receipt Date: 20251017
  Transmission Date: 20260118
  Serious: Yes (Other)
  Sender: ACADIA PHARMACEUTICALS
  Company Number: US-ACADIA PHARMACEUTICALS INC.-ACA-2025-PIM-011082

PATIENT
  Sex: Female

DRUGS (20)
  1. NUPLAZID [Suspect]
     Active Substance: PIMAVANSERIN TARTRATE
     Indication: Parkinson^s disease psychosis
     Dosage: 34 MILLIGRAM, QD
     Route: 048
  2. BENZONATATE [Concomitant]
     Active Substance: BENZONATATE
  3. BIOTIN [Concomitant]
     Active Substance: BIOTIN
  4. BUPROPION [Concomitant]
     Active Substance: BUPROPION
     Dosage: XL
  5. CALCIUM [Concomitant]
     Active Substance: CALCIUM
  6. CANNABIDIOL [Concomitant]
     Active Substance: CANNABIDIOL
  7. CETIRIZINE [Concomitant]
     Active Substance: CETIRIZINE HYDROCHLORIDE
  8. CLONAZEPAM [Concomitant]
     Active Substance: CLONAZEPAM
  9. DONEPEZIL [Concomitant]
     Active Substance: DONEPEZIL
  10. ESTRADIOL [Concomitant]
     Active Substance: ESTRADIOL
  11. FEXOFENADINE [Concomitant]
     Active Substance: FEXOFENADINE HYDROCHLORIDE
  12. HYDROXYZINE HYDROCHLORIDE [Concomitant]
     Active Substance: HYDROXYZINE HYDROCHLORIDE
  13. MELATONIN [Concomitant]
     Active Substance: MELATONIN
  14. MEMANTINE HYDROCHLORIDE [Concomitant]
     Active Substance: MEMANTINE HYDROCHLORIDE
  15. MIDODRINE [Concomitant]
     Active Substance: MIDODRINE
  16. VITAMINS [Concomitant]
     Active Substance: VITAMINS
  17. PREGABALIN [Concomitant]
     Active Substance: PREGABALIN
  18. SUCRALFATE [Concomitant]
     Active Substance: SUCRALFATE
  19. VITAMIN B12 [Concomitant]
     Active Substance: CYANOCOBALAMIN
  20. VITAMIN D3 [Concomitant]
     Active Substance: CHOLECALCIFEROL

REACTIONS (8)
  - Hallucination [Recovered/Resolved]
  - Asthenia [Unknown]
  - Illness [Unknown]
  - Condition aggravated [Unknown]
  - Dizziness [Unknown]
  - Dyspraxia [Unknown]
  - Nausea [Unknown]
  - Product dose omission issue [Unknown]
